FAERS Safety Report 5814710-2 (Version None)
Quarter: 2008Q3

REPORT INFORMATION
  Report Type: 
  Country: None (occurrence: None)
  Receive Date: 20080718
  Receipt Date: 20080407
  Transmission Date: 20090109
  Serious: No
  Sender: FDA-Public Use
  Company Number: US-KINGPHARMUSA00001-K200800418

PATIENT

DRUGS (1)
  1. LEVOXYL [Suspect]
     Dosage: 1/2 OF 50 MCG
     Route: 048
     Dates: start: 20080403

REACTIONS (2)
  - HEADACHE [None]
  - TREMOR [None]
